FAERS Safety Report 23160618 (Version 1)
Quarter: 2023Q4

REPORT INFORMATION
  Report Type: Report from Study
  Country: IT (occurrence: IT)
  Receive Date: 20231108
  Receipt Date: 20231108
  Transmission Date: 20240110
  Serious: Yes (Other)
  Sender: FDA-Public Use
  Company Number: IT-ALXN-202310EEA000271IT

PATIENT
  Age: 43 Year
  Sex: Female
  Weight: 69 kg

DRUGS (2)
  1. SOLIRIS [Suspect]
     Active Substance: ECULIZUMAB
     Indication: Myasthenia gravis
     Dosage: UNK
     Route: 065
     Dates: start: 20220624
  2. SOLIRIS [Suspect]
     Active Substance: ECULIZUMAB
     Dosage: 1200 MICROGRAM, Q2W
     Route: 042

REACTIONS (7)
  - Syncope [Recovered/Resolved]
  - Hemiparesis [Unknown]
  - Asthenia [Not Recovered/Not Resolved]
  - Head injury [Unknown]
  - Eyelid ptosis [Unknown]
  - Clumsiness [Unknown]
  - Limb injury [Unknown]

NARRATIVE: CASE EVENT DATE: 20231026
